FAERS Safety Report 20108750 (Version 1)
Quarter: 2021Q4

REPORT INFORMATION
  Report Type: Report from Study
  Country: DE (occurrence: DE)
  Receive Date: 20211124
  Receipt Date: 20211124
  Transmission Date: 20220303
  Serious: Yes (Other)
  Sender: FDA-Public Use
  Company Number: DE-Accord-128255

PATIENT
  Sex: Female
  Weight: 71 kg

DRUGS (1)
  1. PEGFILGRASTIM [Suspect]
     Active Substance: PEGFILGRASTIM
     Indication: Product used for unknown indication
     Dosage: UNK

REACTIONS (9)
  - Cardiac failure [Recovered/Resolved]
  - Cachexia [Recovered/Resolved]
  - Urinary tract infection [Recovered/Resolved]
  - Escherichia infection [Recovered/Resolved]
  - Pneumonia [Recovered/Resolved]
  - Fall [Unknown]
  - Tooth loss [Unknown]
  - Pleural effusion [Recovered/Resolved]
  - Protein deficiency [Recovered/Resolved]

NARRATIVE: CASE EVENT DATE: 20190418
